FAERS Safety Report 6135089-5 (Version None)
Quarter: 2009Q1

REPORT INFORMATION
  Report Type: 
  Country: None (occurrence: None)
  Receive Date: 20090325
  Receipt Date: 20090308
  Transmission Date: 20090719
  Serious: Yes (Hospitalization, Other)
  Sender: FDA-Public Use
  Company Number: 2007S1004318

PATIENT
  Age: 54 Year
  Sex: Female
  Weight: 82.1011 kg

DRUGS (7)
  1. PHOSPHOSODA FLAVOR NOT SPECIFIED [Suspect]
     Indication: HYSTERECTOMY
     Dosage: 90 ML; TOTAL; PO
     Route: 048
     Dates: start: 20050418, end: 20050418
  2. PHOSPHOSODA FLAVOR NOT SPECIFIED [Suspect]
     Indication: LAPAROTOMY
     Dosage: 90 ML; TOTAL; PO
     Route: 048
     Dates: start: 20050418, end: 20050418
  3. TORADOL [Concomitant]
  4. ADVAIR HFA [Concomitant]
  5. CELEXA [Concomitant]
  6. ALBUTEROL [Concomitant]
  7. NICODERM [Concomitant]

REACTIONS (11)
  - ANAEMIA [None]
  - ANXIETY [None]
  - BACK PAIN [None]
  - DYSURIA [None]
  - EYELID OEDEMA [None]
  - HEADACHE [None]
  - HYPERTENSION [None]
  - NECK PAIN [None]
  - OEDEMA PERIPHERAL [None]
  - RENAL FAILURE ACUTE [None]
  - RENAL FAILURE CHRONIC [None]
